FAERS Safety Report 24733749 (Version 2)
Quarter: 2024Q4

REPORT INFORMATION
  Report Type: Report from Study
  Country: RU (occurrence: RU)
  Receive Date: 20241213
  Receipt Date: 20241220
  Transmission Date: 20250115
  Serious: Yes (Other)
  Sender: NOVARTIS
  Company Number: RU-002147023-NVSC2024RU200673

PATIENT
  Age: 1 Year
  Sex: Male
  Weight: 13.1 kg

DRUGS (3)
  1. ZOLGENSMA [Suspect]
     Active Substance: ONASEMNOGENE ABEPARVOVEC-XIOI
     Indication: Spinal muscular atrophy
     Dosage: UNK, ONCE/SINGLE
     Route: 041
     Dates: start: 20240830, end: 20240830
  2. PREDNISOLONE [Concomitant]
     Active Substance: PREDNISOLONE
     Indication: Product used for unknown indication
     Dosage: 5 MG, QD
     Route: 065
     Dates: start: 20240823
  3. OMEPRAZOLE [Concomitant]
     Active Substance: OMEPRAZOLE
     Indication: Product used for unknown indication
     Dosage: 10 MG, QD
     Route: 065
     Dates: start: 20240823

REACTIONS (24)
  - Aspartate aminotransferase increased [Unknown]
  - Alanine aminotransferase increased [Unknown]
  - Blood creatinine decreased [Unknown]
  - Monocyte percentage increased [Unknown]
  - Mean cell haemoglobin increased [Unknown]
  - White blood cell count decreased [Unknown]
  - Lymphocyte count increased [Unknown]
  - Lymphocyte percentage decreased [Unknown]
  - Monocyte count increased [Unknown]
  - Haemoglobin increased [Unknown]
  - Red blood cell count increased [Unknown]
  - Haematocrit increased [Unknown]
  - Basophil count increased [Unknown]
  - Mean cell volume increased [Unknown]
  - White blood cell count increased [Unknown]
  - Lymphocyte count decreased [Unknown]
  - Plateletcrit decreased [Unknown]
  - Neutrophil percentage decreased [Unknown]
  - Eosinophil percentage decreased [Unknown]
  - Basophil percentage increased [Unknown]
  - Platelet count decreased [Unknown]
  - Immature granulocyte percentage increased [Unknown]
  - Immature granulocyte count increased [Unknown]
  - Laboratory test abnormal [Unknown]

NARRATIVE: CASE EVENT DATE: 20240905
